FAERS Safety Report 8588243-7 (Version None)
Quarter: 2012Q3

REPORT INFORMATION
  Report Type: 
  Country: None (occurrence: None)
  Receive Date: 20120813
  Receipt Date: 20120803
  Transmission Date: 20120928
  Serious: Yes (Other)
  Sender: FDA-Public Use
  Company Number: US-AMGEN-USASP2012049752

PATIENT
  Sex: Female

DRUGS (2)
  1. PROCRIT [Suspect]
     Dosage: 22000 IU, UNK
     Dates: start: 20120802, end: 20120802
  2. PROCRIT [Suspect]
     Indication: PREOPERATIVE CARE
     Dosage: UNK
     Dates: start: 20120725, end: 20120725

REACTIONS (2)
  - PROCEDURAL HAEMORRHAGE [None]
  - ANAEMIA [None]
